FAERS Safety Report 8175194-5 (Version None)
Quarter: 2012Q1

REPORT INFORMATION
  Report Type: 
  Country: None (occurrence: None)
  Receive Date: 20120229
  Receipt Date: 20120224
  Transmission Date: 20120608
  Serious: Yes (Death, Life-Threatening, Hospitalization)
  Sender: FDA-Public Use
  Company Number: AT-PFIZER INC-2012041546

PATIENT
  Age: 37 Year
  Sex: Male
  Weight: 75 kg

DRUGS (7)
  1. AMITRIPTYLINE HCL [Concomitant]
  2. PASPERTIN [Concomitant]
  3. VENDAL [Concomitant]
  4. CRIZOTINIB [Suspect]
     Dosage: UNK
     Dates: start: 20111229
  5. NOVALGIN [Concomitant]
  6. LOVENOX [Concomitant]
  7. FORTECORTIN [Concomitant]

REACTIONS (2)
  - DYSPHAGIA [None]
  - CEREBRAL INFARCTION [None]
